FAERS Safety Report 23991654 (Version 1)
Quarter: 2024Q2

REPORT INFORMATION
  Report Type: Spontaneous
  Country: FR (occurrence: FR)
  Receive Date: 20240619
  Receipt Date: 20240619
  Transmission Date: 20240716
  Serious: Yes (Hospitalization)
  Sender: FDA-Public Use
  Company Number: FR-AFSSAPS-AVCN2024000422

PATIENT
  Age: 27 Year
  Sex: Male

DRUGS (4)
  1. NITROUS OXIDE [Suspect]
     Active Substance: NITROUS OXIDE
     Indication: Product used for unknown indication
     Route: 055
  2. CANNABIS SATIVA SUBSP. INDICA TOP [Suspect]
     Active Substance: CANNABIS SATIVA SUBSP. INDICA TOP
     Route: 055
  3. NICOTINE\TOBACCO LEAF [Suspect]
     Active Substance: NICOTINE\TOBACCO LEAF
     Route: 055
  4. ALCOHOL [Suspect]
     Active Substance: ALCOHOL
     Route: 048

REACTIONS (5)
  - Deep vein thrombosis [Recovering/Resolving]
  - Hyperhomocysteinaemia [Recovering/Resolving]
  - Amino acid level increased [Recovering/Resolving]
  - Vitamin B12 decreased [Recovering/Resolving]
  - Oedema [Recovering/Resolving]

NARRATIVE: CASE EVENT DATE: 20240411
